FAERS Safety Report 4284832-9 (Version None)
Quarter: 2004Q1

REPORT INFORMATION
  Report Type: 
  Country: None (occurrence: None)
  Receive Date: 20040202
  Receipt Date: 20040120
  Transmission Date: 20041129
  Serious: Yes (Other)
  Sender: FDA-Public Use
  Company Number: TNZUK200400006

PATIENT
  Sex: Male

DRUGS (1)
  1. INNOHEP [Suspect]

REACTIONS (2)
  - INJECTION SITE SWELLING [None]
  - WHEEZING [None]
